FAERS Safety Report 5040918-2 (Version None)
Quarter: 2006Q2

REPORT INFORMATION
  Report Type: 
  Country: None (occurrence: None)
  Receive Date: 20060601
  Receipt Date: 20060302
  Transmission Date: 20061013
  Serious: No
  Sender: FDA-Public Use
  Company Number: 2006PV009585

PATIENT
  Age: 57 Year
  Sex: Male
  Weight: 131.0895 kg

DRUGS (4)
  1. BYETTA [Suspect]
     Indication: DIABETES MELLITUS NON-INSULIN-DEPENDENT
     Dosage: SEE IMAGE
     Route: 058
     Dates: start: 20060119, end: 20060218
  2. BYETTA [Suspect]
     Indication: DIABETES MELLITUS NON-INSULIN-DEPENDENT
     Dosage: SEE IMAGE
     Route: 058
     Dates: start: 20060219
  3. GLUCOPHAGE [Concomitant]
  4. GLUCOVANCE [Concomitant]

REACTIONS (4)
  - ABDOMINAL DISTENSION [None]
  - DECREASED APPETITE [None]
  - NAUSEA [None]
  - WEIGHT DECREASED [None]
